FAERS Safety Report 6348579-7 (Version None)
Quarter: 2009Q3

REPORT INFORMATION
  Report Type: 
  Country: None (occurrence: None)
  Receive Date: 20090911
  Receipt Date: 20090908
  Transmission Date: 20100115
  Serious: Yes (Life-Threatening)
  Sender: FDA-Public Use
  Company Number: JP-JNJFOC-20090903275

PATIENT
  Age: 89 Year
  Sex: Male

DRUGS (34)
  1. DUROTEP MT [Suspect]
     Route: 062
  2. DUROTEP MT [Suspect]
     Route: 062
  3. DUROTEP MT [Suspect]
     Route: 062
  4. DUROTEP MT [Suspect]
     Route: 062
  5. DUROTEP MT [Suspect]
     Route: 062
  6. DUROTEP MT [Suspect]
     Route: 062
  7. DUROTEP MT [Suspect]
     Route: 062
  8. DUROTEP MT [Suspect]
     Route: 062
  9. DUROTEP MT [Suspect]
     Route: 062
  10. DUROTEP MT [Suspect]
     Route: 062
  11. DUROTEP MT [Suspect]
     Route: 062
  12. DUROTEP MT [Suspect]
     Route: 062
  13. DUROTEP MT [Suspect]
     Indication: CANCER PAIN
     Route: 062
  14. RISPERIDONE [Suspect]
     Indication: DELIRIUM
     Route: 065
  15. OXYNORM [Suspect]
     Route: 065
  16. OXYNORM [Suspect]
     Indication: CANCER PAIN
     Route: 065
  17. DORMICUM [Suspect]
     Indication: INSOMNIA
     Route: 058
  18. BANAN [Concomitant]
     Indication: PNEUMONIA ASPIRATION
     Route: 065
  19. GASTER [Concomitant]
     Indication: PROPHYLAXIS
     Route: 048
  20. TIAPRIDE HYDROCHLORIDE [Concomitant]
     Indication: DELIRIUM
     Route: 065
  21. SERENACE [Concomitant]
     Indication: DELIRIUM
     Route: 058
  22. MEROPENEM TRIHYDRATE [Concomitant]
     Indication: PNEUMONIA ASPIRATION
     Route: 042
  23. ZOMETA [Concomitant]
     Indication: ANALGESIC THERAPY
     Route: 042
  24. TIENAM [Concomitant]
     Indication: PNEUMONIA ASPIRATION
     Route: 030
  25. OXYNORM [Concomitant]
     Indication: ANALGESIC THERAPY
     Route: 065
  26. GABAPEN [Concomitant]
     Route: 065
  27. GABAPEN [Concomitant]
     Indication: ANALGESIC THERAPY
     Route: 065
  28. LIORESAL [Concomitant]
     Indication: ANALGESIC THERAPY
     Route: 065
  29. CALONAL [Concomitant]
     Indication: ANALGESIC THERAPY
     Route: 065
  30. LOXOPROFEN SODIUM [Concomitant]
     Indication: ANALGESIC THERAPY
     Route: 065
  31. SODIUM CHLORIDE [Concomitant]
     Indication: HYPONATRAEMIA
     Route: 065
  32. MYSLEE [Concomitant]
     Indication: INSOMNIA
     Route: 065
  33. MAGNESIUM OXIDE [Concomitant]
     Indication: CONSTIPATION
     Route: 065
  34. HANGE-KOBOKU-TO (HERBAL MEDICINE) [Concomitant]
     Indication: DELIRIUM
     Route: 065

REACTIONS (4)
  - PAIN [None]
  - PNEUMONIA ASPIRATION [None]
  - SOMNOLENCE [None]
  - WRONG TECHNIQUE IN DRUG USAGE PROCESS [None]
